FAERS Safety Report 24001588 (Version 1)
Quarter: 2024Q2

REPORT INFORMATION
  Report Type: Other
  Country: US (occurrence: US)
  Receive Date: 20240621
  Receipt Date: 20240621
  Transmission Date: 20240717
  Serious: Yes (Other)
  Sender: FDA-Public Use
  Company Number: US-Fagron Sterile Services-2158411

PATIENT

DRUGS (1)
  1. ARGININE\LYSINE [Suspect]
     Active Substance: ARGININE\LYSINE

REACTIONS (1)
  - Adverse reaction [Recovered/Resolved]
